FAERS Safety Report 15822871 (Version 1)
Quarter: 2019Q1

REPORT INFORMATION
  Report Type: Spontaneous
  Country: JP (occurrence: JP)
  Receive Date: 20190114
  Receipt Date: 20190114
  Transmission Date: 20190417
  Serious: Yes (Hospitalization, Other)
  Sender: FDA-Public Use
  Company Number: JP-PFIZER INC-2015346134

PATIENT
  Age: 11 Year
  Sex: Male

DRUGS (8)
  1. METHOTREXATE SODIUM. [Suspect]
     Active Substance: METHOTREXATE SODIUM
     Indication: MEDULLOBLASTOMA
     Dosage: SIX INJECTIONS, CUMULATIVE DOSE: 72MG/BODY
     Route: 037
  2. VINCRISTINE [Suspect]
     Active Substance: VINCRISTINE
     Indication: MEDULLOBLASTOMA
     Dosage: 0.6 MG/M2, CYCLIC FOR 4 CYCLES
     Route: 065
  3. THIOTEPA. [Suspect]
     Active Substance: THIOTEPA
     Indication: MEDULLOBLASTOMA
     Dosage: 1 CYCLE; CUMULATIVE DOSE FOR TREATMENT OF MEDULLOBLASTOMA: 800MG/M2
     Route: 065
  4. ETOPOSIDE. [Suspect]
     Active Substance: ETOPOSIDE
     Indication: MEDULLOBLASTOMA
     Dosage: FOR 4 CYCLES;CUMULATIVE DOSE WAS 14000MG/M 2
     Route: 065
  5. DEXAMETHASONE. [Suspect]
     Active Substance: DEXAMETHASONE
     Indication: MEDULLOBLASTOMA
     Dosage: SIX INJECTIONS
     Route: 037
  6. CISPLATIN. [Suspect]
     Active Substance: CISPLATIN
     Indication: MEDULLOBLASTOMA
     Dosage: 360 MG/M2, CYCLIC FOR 4 CYCLES
     Route: 065
  7. MELPHALAN. [Suspect]
     Active Substance: MELPHALAN
     Indication: MEDULLOBLASTOMA
     Dosage: 1 CYCLE; CUMULATIVE DOSE FOR TREATMENT OF MEDULLOBLASTOMA: 280MG/M2
     Route: 065
  8. CYCLOPHOSPHAMIDE. [Suspect]
     Active Substance: CYCLOPHOSPHAMIDE
     Indication: MEDULLOBLASTOMA
     Dosage: 12000 MG/M2, CYCLIC FOR 4 CYCLES
     Route: 065

REACTIONS (2)
  - Second primary malignancy [Recovered/Resolved]
  - Osteosarcoma [Recovered/Resolved]
